FAERS Safety Report 9008620 (Version 1)
Quarter: 2013Q1

REPORT INFORMATION
  Report Type: Spontaneous
  Country: US (occurrence: US)
  Receive Date: 20130111
  Receipt Date: 20130111
  Transmission Date: 20140127
  Serious: No
  Sender: FDA-Public Use
  Company Number: US-MYLANLABS-2012S1023812

PATIENT
  Age: 69 Year
  Sex: Female

DRUGS (5)
  1. IBANDRONATE SODIUM TABLETS [Suspect]
     Route: 048
     Dates: start: 201204
  2. SYNTHROID [Concomitant]
  3. LISINOPRIL [Concomitant]
  4. VIT D [Concomitant]
  5. MELATONIN [Concomitant]

REACTIONS (1)
  - Diarrhoea [Not Recovered/Not Resolved]
